FAERS Safety Report 17229877 (Version 1)
Quarter: 2019Q4

REPORT INFORMATION
  Report Type: Spontaneous
  Country: US (occurrence: US)
  Receive Date: 20191210
  Receipt Date: 20191210
  Transmission Date: 20200122
  Serious: Yes (Life-Threatening, Hospitalization, Disabling)
  Sender: FDA-Public Use
  Company Number: None

PATIENT
  Sex: Male
  Weight: 136.08 kg

DRUGS (1)
  1. EDOXABAN( EDOXABAN 60MG TAB) [Suspect]
     Active Substance: EDOXABAN
     Indication: ATRIAL FIBRILLATION
     Route: 048
     Dates: start: 20181002, end: 20181208

REACTIONS (2)
  - Retroperitoneal haemorrhage [None]
  - Haemorrhage [None]

NARRATIVE: CASE EVENT DATE: 20181208
